FAERS Safety Report 6479296-0 (Version None)
Quarter: 2009Q4

REPORT INFORMATION
  Report Type: 
  Country: None (occurrence: None)
  Receive Date: 20091207
  Receipt Date: 20090220
  Transmission Date: 20100525
  Serious: No
  Sender: FDA-Public Use
  Company Number: US-AMGEN-KDL334923

PATIENT
  Sex: Female
  Weight: 56.8 kg

DRUGS (3)
  1. ENBREL [Suspect]
     Indication: PSORIASIS
     Route: 058
     Dates: start: 20080207
  2. CLOBETASOL PROPIONATE [Concomitant]
  3. DESOWEN [Concomitant]
     Route: 061

REACTIONS (1)
  - HAEMATOCHEZIA [None]
